FAERS Safety Report 19302102 (Version 2)
Quarter: 2023Q2

REPORT INFORMATION
  Report Type: Report from Study
  Country: TR (occurrence: TR)
  Receive Date: 20210525
  Receipt Date: 20230502
  Transmission Date: 20230722
  Serious: Yes (Death, Other)
  Sender: FDA-Public Use
  Company Number: TR-SUN PHARMACEUTICAL INDUSTRIES LTD-2021R1-297762

PATIENT

DRUGS (3)
  1. RISPERIDONE [Suspect]
     Active Substance: RISPERIDONE
     Indication: Nervous system disorder
     Dosage: 4 MILLIGRAM, QD
     Route: 064
  2. QUETIAPINE [Suspect]
     Active Substance: QUETIAPINE
     Indication: Nervous system disorder
     Dosage: 200 MILLIGRAM, QD
     Route: 064
  3. VALPROIC ACID [Suspect]
     Active Substance: VALPROIC ACID
     Indication: Nervous system disorder
     Dosage: 500 MILLIGRAM, BID
     Route: 064

REACTIONS (2)
  - Cardiac dysfunction [Fatal]
  - Foetal exposure during pregnancy [Unknown]
